FAERS Safety Report 12280342 (Version 1)
Quarter: 2016Q2

REPORT INFORMATION
  Report Type: Report from Study
  Country: US (occurrence: US)
  Receive Date: 20160419
  Receipt Date: 20160419
  Transmission Date: 20160815
  Serious: Yes (Hospitalization, Other)
  Sender: FDA-Public Use
  Company Number: US-BIOGEN-2014BI075902

PATIENT
  Sex: Female

DRUGS (1)
  1. TYSABRI [Suspect]
     Active Substance: NATALIZUMAB
     Indication: MULTIPLE SCLEROSIS
     Route: 042
     Dates: start: 20130412, end: 20160202

REACTIONS (9)
  - Gastric ulcer haemorrhage [Unknown]
  - Seizure [Unknown]
  - Epilepsy [Recovered/Resolved]
  - Ulcer haemorrhage [Recovered/Resolved]
  - Myalgia [Not Recovered/Not Resolved]
  - Medical induction of coma [Recovered/Resolved]
  - Upper gastrointestinal haemorrhage [Unknown]
  - Ulcer [Not Recovered/Not Resolved]
  - Arthropod bite [Not Recovered/Not Resolved]

NARRATIVE: CASE EVENT DATE: 2013
